FAERS Safety Report 25198218 (Version 1)
Quarter: 2025Q2

REPORT INFORMATION
  Report Type: Spontaneous
  Country: US (occurrence: US)
  Receive Date: 20250415
  Receipt Date: 20250415
  Transmission Date: 20250717
  Serious: Yes (Life-Threatening, Hospitalization, Other)
  Sender: CIPLA
  Company Number: US-MLMSERVICE-20250331-PI461988-00163-1

PATIENT

DRUGS (2)
  1. GABAPENTIN [Suspect]
     Active Substance: GABAPENTIN
     Indication: Product used for unknown indication
     Route: 048
  2. LACOSAMIDE [Suspect]
     Active Substance: LACOSAMIDE
     Indication: Product used for unknown indication
     Route: 048

REACTIONS (5)
  - Brain death [Recovered/Resolved]
  - Lactic acidosis [Recovered/Resolved]
  - Ventricular arrhythmia [Recovered/Resolved]
  - Cardiac arrest [Recovered/Resolved]
  - Status epilepticus [Recovered/Resolved]
